FAERS Safety Report 22294400 (Version 2)
Quarter: 2023Q2

REPORT INFORMATION
  Report Type: Spontaneous
  Country: GB (occurrence: GB)
  Receive Date: 20230508
  Receipt Date: 20230516
  Transmission Date: 20230722
  Serious: Yes (Hospitalization, Other)
  Sender: FDA-Public Use
  Company Number: None

PATIENT
  Age: 63 Year

DRUGS (13)
  1. OMEPRAZOLE [Suspect]
     Active Substance: OMEPRAZOLE
     Indication: Product used for unknown indication
  2. OMEPRAZOLE [Suspect]
     Active Substance: OMEPRAZOLE
     Indication: Duodenal ulcer
  3. BACLOFEN [Suspect]
     Active Substance: BACLOFEN
  4. DIAZEPAM [Suspect]
     Active Substance: DIAZEPAM
  5. LISINOPRIL [Suspect]
     Active Substance: LISINOPRIL
  6. METFORMIN [Suspect]
     Active Substance: METFORMIN HYDROCHLORIDE
  7. ACETAMINOPHEN [Suspect]
     Active Substance: ACETAMINOPHEN
  8. QUETIAPINE [Suspect]
     Active Substance: QUETIAPINE
  9. SERTRALINE [Suspect]
     Active Substance: SERTRALINE HYDROCHLORIDE
  10. SIMVASTATIN [Suspect]
     Active Substance: SIMVASTATIN
  11. THIAMINE [Suspect]
     Active Substance: THIAMINE
  12. ZOPICLONE [Suspect]
     Active Substance: ZOPICLONE
  13. ACAMPROSATE [Concomitant]
     Active Substance: ACAMPROSATE

REACTIONS (2)
  - Overdose [Unknown]
  - Unresponsive to stimuli [Unknown]
